FAERS Safety Report 8585296-7 (Version None)
Quarter: 2012Q3

REPORT INFORMATION
  Report Type: 
  Country: None (occurrence: None)
  Receive Date: 20120810
  Receipt Date: 20120731
  Transmission Date: 20120928
  Serious: Yes (Other)
  Sender: FDA-Public Use
  Company Number: AR-AMGEN-ARGSP2012035322

PATIENT
  Age: 54 Year
  Sex: Female

DRUGS (4)
  1. T4 [Concomitant]
     Dosage: UNK
  2. ENBREL [Suspect]
     Indication: RHEUMATOID ARTHRITIS
     Dosage: 50 MG, WEEKLY
     Route: 058
     Dates: start: 20060610, end: 20120301
  3. ENALAPRIL MALEATE [Concomitant]
     Dosage: UNK
  4. INSULATARD NPH [Concomitant]
     Dosage: UNK UNK, UNK

REACTIONS (6)
  - ARTHRITIS [None]
  - WEIGHT DECREASED [None]
  - SENSORY DISTURBANCE [None]
  - VASCULITIS [None]
  - OROPHARYNGEAL PAIN [None]
  - INFLUENZA [None]
